FAERS Safety Report 8232153-1 (Version None)
Quarter: 2012Q1

REPORT INFORMATION
  Report Type: 
  Country: None (occurrence: None)
  Receive Date: 20120323
  Receipt Date: 20120314
  Transmission Date: 20120608
  Serious: Yes (Other)
  Sender: FDA-Public Use
  Company Number: JP-VERTEX PHARMACEUTICALS INC.-AE-2012-004095

PATIENT
  Age: 68 Year
  Sex: Male

DRUGS (3)
  1. PEGINTERFERON ALFA-2A [Concomitant]
     Route: 051
  2. TELAVIC (TELAPREVIR) [Suspect]
     Route: 048
     Dates: start: 20120306
  3. REBETOL [Concomitant]
     Route: 048

REACTIONS (1)
  - RENAL IMPAIRMENT [None]
